FAERS Safety Report 4518927-9 (Version None)
Quarter: 2004Q4

REPORT INFORMATION
  Report Type: 
  Country: None (occurrence: None)
  Receive Date: 20041203
  Receipt Date: 20041203
  Transmission Date: 20050328
  Serious: Yes (Other)
  Sender: FDA-Public Use
  Company Number: None

PATIENT
  Age: 56 Year
  Sex: Female
  Weight: 63.5036 kg

DRUGS (2)
  1. PRASCION CLEANSER [Suspect]
     Indication: ACNE
     Dosage: SMALL AMOUNT TOPICAL DAILY
     Route: 061
     Dates: start: 20030701, end: 20030901
  2. DIFFERIN [Concomitant]

REACTIONS (2)
  - ACNE [None]
  - SKIN IRRITATION [None]
